FAERS Safety Report 25767059 (Version 1)
Quarter: 2025Q3

REPORT INFORMATION
  Report Type: Spontaneous
  Country: BR (occurrence: BR)
  Receive Date: 20250905
  Receipt Date: 20250905
  Transmission Date: 20251021
  Serious: Yes (Hospitalization, Other)
  Sender: ROCHE
  Company Number: BR-ROCHE-10000374349

PATIENT
  Age: 71 Year
  Sex: Female
  Weight: 57 kg

DRUGS (5)
  1. ATEZOLIZUMAB [Suspect]
     Active Substance: ATEZOLIZUMAB
     Indication: Non-small cell lung cancer
     Route: 065
     Dates: start: 202411
  2. CISPLATIN [Concomitant]
     Active Substance: CISPLATIN
     Indication: Non-small cell lung cancer
     Route: 065
  3. PEMETREXED [Concomitant]
     Active Substance: PEMETREXED
     Indication: Non-small cell lung cancer
     Route: 065
  4. DABRAFENIB [Concomitant]
     Active Substance: DABRAFENIB
     Indication: Anaplastic thyroid cancer
     Route: 065
     Dates: start: 202505
  5. TRAMETINIB [Concomitant]
     Active Substance: TRAMETINIB
     Indication: Anaplastic thyroid cancer
     Route: 065
     Dates: start: 202505

REACTIONS (9)
  - Bone disorder [Unknown]
  - Lymphadenopathy [Unknown]
  - Mass [Unknown]
  - General physical health deterioration [Unknown]
  - Chest pain [Unknown]
  - Weight decreased [Unknown]
  - Abdominal pain [Unknown]
  - Intestinal obstruction [Unknown]
  - Anaplastic thyroid cancer [Unknown]

NARRATIVE: CASE EVENT DATE: 20241101
